FAERS Safety Report 8812119 (Version 2)
Quarter: 2012Q4

REPORT INFORMATION
  Report Type: 
  Country: US (occurrence: US)
  Receive Date: 20120927
  Receipt Date: 20121011
  Transmission Date: 20130627
  Serious: No
  Sender: FDA-Public Use
  Company Number: US-ELI_LILLY_AND_COMPANY-US201209006941

PATIENT
  Sex: Female

DRUGS (3)
  1. ALIMTA [Suspect]
     Indication: LUNG NEOPLASM MALIGNANT
     Dosage: 980 mg, other
     Dates: start: 20120824
  2. VITAMIN B12 [Concomitant]
  3. FOLIC ACID [Concomitant]

REACTIONS (1)
  - No adverse event [Unknown]
